FAERS Safety Report 22382477 (Version 2)
Quarter: 2023Q2

REPORT INFORMATION
  Report Type: Spontaneous
  Country: US (occurrence: US)
  Receive Date: 20230530
  Receipt Date: 20230628
  Transmission Date: 20230722
  Serious: Yes (Other)
  Sender: FDA-Public Use
  Company Number: US-GLAXOSMITHKLINE-US2021AMR201234

PATIENT

DRUGS (1)
  1. ZEJULA [Suspect]
     Active Substance: NIRAPARIB
     Indication: Ovarian cancer
     Dosage: 200 MG, QD
     Route: 048
     Dates: start: 20210909

REACTIONS (10)
  - Dermatitis bullous [Unknown]
  - Nausea [Not Recovered/Not Resolved]
  - Tooth extraction [Unknown]
  - Ileostomy [Unknown]
  - Fatigue [Recovering/Resolving]
  - Decreased appetite [Unknown]
  - Constipation [Recovering/Resolving]
  - Blood pressure increased [Recovered/Resolved]
  - Carbohydrate antigen 125 increased [Unknown]
  - Product dose omission issue [Unknown]

NARRATIVE: CASE EVENT DATE: 20210901
